FAERS Safety Report 12289631 (Version 1)
Quarter: 2016Q2

REPORT INFORMATION
  Report Type: Spontaneous
  Country: US (occurrence: US)
  Receive Date: 20160421
  Receipt Date: 20160421
  Transmission Date: 20160815
  Serious: No
  Sender: FDA-Public Use
  Company Number: US-TEVA-553875USA

PATIENT
  Age: 76 Year
  Sex: Female

DRUGS (2)
  1. CEFALEXIN [Suspect]
     Active Substance: CEPHALEXIN
     Indication: UROSEPSIS
  2. CEFALEXIN [Suspect]
     Active Substance: CEPHALEXIN
     Indication: GENITOURINARY TRACT INFECTION
     Dosage: 125 MILLIGRAM DAILY;
     Route: 048
     Dates: start: 20150405, end: 20150407

REACTIONS (2)
  - Headache [Unknown]
  - Hypertension [Unknown]

NARRATIVE: CASE EVENT DATE: 201504
